FAERS Safety Report 22833070 (Version 4)
Quarter: 2023Q4

REPORT INFORMATION
  Report Type: Spontaneous
  Country: US (occurrence: US)
  Receive Date: 20230817
  Receipt Date: 20231219
  Transmission Date: 20240109
  Serious: Yes (Other)
  Sender: FDA-Public Use
  Company Number: US-PFIZER INC-PV202200039712

PATIENT
  Age: 82 Year
  Sex: Female

DRUGS (3)
  1. IBRANCE [Suspect]
     Active Substance: PALBOCICLIB
     Indication: Breast cancer female
     Dosage: (FOR 14 DAYS THIS CYCLE ONLY, NEXT CYCLE WILL BE 21 DAYS ON, 7 DAYS OFF)
     Route: 048
  2. IBRANCE [Suspect]
     Active Substance: PALBOCICLIB
     Dosage: (TAKE 75 MG BY MOUTH DAILY FOR 21 DAYS. 21 DAYS ON, 7 DAYS OFF)
  3. IBRANCE [Suspect]
     Active Substance: PALBOCICLIB
     Dosage: 75 MG

REACTIONS (6)
  - Second primary malignancy [Not Recovered/Not Resolved]
  - Bone cancer [Not Recovered/Not Resolved]
  - Neoplasm progression [Unknown]
  - Discomfort [Unknown]
  - Malaise [Unknown]
  - Off label use [Unknown]
